FAERS Safety Report 16346633 (Version 2)
Quarter: 2019Q4

REPORT INFORMATION
  Report Type: Spontaneous
  Country: US (occurrence: US)
  Receive Date: 20190523
  Receipt Date: 20191029
  Transmission Date: 20200122
  Serious: No
  Sender: FDA-Public Use
  Company Number: US-PFIZER INC-2019220188

PATIENT

DRUGS (1)
  1. BUPIVACAINE HYDROCHLORIDE/EPINEPHRINE [Suspect]
     Active Substance: BUPIVACAINE HYDROCHLORIDE\EPINEPHRINE
     Indication: SURGERY
     Dosage: UNK
     Dates: start: 20190410, end: 20190410

REACTIONS (1)
  - Drug ineffective [Unknown]
